FAERS Safety Report 15126426 (Version 1)
Quarter: 2018Q3

REPORT INFORMATION
  Report Type: Spontaneous
  Country: FR (occurrence: FR)
  Receive Date: 20180710
  Receipt Date: 20180710
  Transmission Date: 20181010
  Serious: Yes (Hospitalization, Other)
  Sender: FDA-Public Use
  Company Number: FR-SA-2018SA171930

PATIENT
  Sex: Female

DRUGS (4)
  1. LEXOMIL [Suspect]
     Active Substance: BROMAZEPAM
     Dosage: UNK UNK, UNK
     Route: 048
     Dates: start: 1996
  2. XANAX [Suspect]
     Active Substance: ALPRAZOLAM
     Dosage: UNK, UNK
     Route: 048
     Dates: start: 201801
  3. STILNOX [Suspect]
     Active Substance: ZOLPIDEM TARTRATE
     Dosage: UNK UNK, UNK
     Route: 048
     Dates: start: 1996
  4. IMOVANE [Suspect]
     Active Substance: ZOPICLONE
     Dosage: UNK, UNK
     Route: 048
     Dates: start: 201801

REACTIONS (3)
  - Drug dependence [Unknown]
  - Drug detoxification [Unknown]
  - Drug withdrawal convulsions [Unknown]

NARRATIVE: CASE EVENT DATE: 1996
